FAERS Safety Report 10183769 (Version 2)
Quarter: 2014Q3

REPORT INFORMATION
  Report Type: Other
  Country: CA (occurrence: CA)
  Receive Date: 20140520
  Receipt Date: 20140721
  Transmission Date: 20150326
  Serious: Yes (Hospitalization)
  Sender: FDA-Public Use
  Company Number: CA-ACORDA-ACO_103553_2014

PATIENT
  Age: 56 Year
  Sex: Female

DRUGS (2)
  1. FAMPYRA [Suspect]
     Active Substance: DALFAMPRIDINE
     Indication: GAIT DISTURBANCE
     Dosage: 10 MG, Q 12 HRS
     Route: 048
     Dates: start: 20140411, end: 20140506
  2. FAMPYRA [Suspect]
     Active Substance: DALFAMPRIDINE
     Dosage: 10 MG, Q 12 HRS
     Route: 048
     Dates: start: 2014

REACTIONS (6)
  - Rib fracture [Recovered/Resolved]
  - Nausea [Recovered/Resolved]
  - Bone contusion [Recovered/Resolved]
  - Dizziness [Recovered/Resolved]
  - Laceration [Recovered/Resolved]
  - Fall [Recovered/Resolved]

NARRATIVE: CASE EVENT DATE: 20140502
